FAERS Safety Report 19864769 (Version 1)
Quarter: 2021Q3

REPORT INFORMATION
  Report Type: Spontaneous
  Country: US (occurrence: US)
  Receive Date: 20210921
  Receipt Date: 20210921
  Transmission Date: 20211014
  Serious: Yes (Other)
  Sender: FDA-Public Use
  Company Number: US-PFIZER INC-202101218782

PATIENT
  Age: 6 Decade
  Sex: Male

DRUGS (2)
  1. CORTEF [Suspect]
     Active Substance: HYDROCORTISONE
     Dosage: UNK, 3X/DAY (30MG IN THE MORNING, 10MG IN THE AFTERNOON, AND 10MG IN THE EVENING)
  2. RIFAMPIN. [Suspect]
     Active Substance: RIFAMPIN
     Dosage: 600 MG, 1X/DAY (IN THE EVENING)

REACTIONS (3)
  - Tachycardia [Unknown]
  - Pneumonia [Unknown]
  - Pyrexia [Unknown]
